FAERS Safety Report 4867098-8 (Version None)
Quarter: 2005Q4

REPORT INFORMATION
  Report Type: 
  Country: None (occurrence: None)
  Receive Date: 20051220
  Receipt Date: 20051213
  Transmission Date: 20060501
  Serious: Yes (Death)
  Sender: FDA-Public Use
  Company Number: HQWYE001414DEC05

PATIENT
  Sex: Male

DRUGS (2)
  1. MYLOTARG [Suspect]
     Indication: ACUTE MYELOID LEUKAEMIA
     Dosage: SEE IMAGE
  2. MYLOTARG [Suspect]
     Indication: LEUKAEMIA RECURRENT
     Dosage: SEE IMAGE

REACTIONS (1)
  - GRAFT VERSUS HOST DISEASE [None]
